FAERS Safety Report 6421649-0 (Version None)
Quarter: 2009Q4

REPORT INFORMATION
  Report Type: 
  Country: None (occurrence: None)
  Receive Date: 20091029
  Receipt Date: 20091029
  Transmission Date: 20100525
  Serious: Yes (Other)
  Sender: FDA-Public Use
  Company Number: None

PATIENT
  Age: 71 Year
  Sex: Female
  Weight: 52.1637 kg

DRUGS (6)
  1. ULTRAM ER [Suspect]
     Indication: FIBROMYALGIA
     Dosage: 100 MG 1 X DAY PO; 100 MG 2 X DAY PO
     Route: 048
     Dates: start: 20071101, end: 20090801
  2. ULTRAM ER [Suspect]
     Indication: OCCIPITAL NEURALGIA
     Dosage: 100 MG 1 X DAY PO; 100 MG 2 X DAY PO
     Route: 048
     Dates: start: 20071101, end: 20090801
  3. ULTRAM ER [Suspect]
     Indication: OSTEOARTHRITIS
     Dosage: 100 MG 1 X DAY PO; 100 MG 2 X DAY PO
     Route: 048
     Dates: start: 20071101, end: 20090801
  4. ULTRAM ER [Suspect]
     Indication: FIBROMYALGIA
     Dosage: 100 MG 1 X DAY PO; 100 MG 2 X DAY PO
     Route: 048
     Dates: start: 20090801, end: 20091013
  5. ULTRAM ER [Suspect]
     Indication: OCCIPITAL NEURALGIA
     Dosage: 100 MG 1 X DAY PO; 100 MG 2 X DAY PO
     Route: 048
     Dates: start: 20090801, end: 20091013
  6. ULTRAM ER [Suspect]
     Indication: OSTEOARTHRITIS
     Dosage: 100 MG 1 X DAY PO; 100 MG 2 X DAY PO
     Route: 048
     Dates: start: 20090801, end: 20091013

REACTIONS (7)
  - ARTHROPOD BITE [None]
  - BACTERIAL INFECTION [None]
  - BLISTER [None]
  - DERMATITIS EXFOLIATIVE [None]
  - DRUG HYPERSENSITIVITY [None]
  - FIBROMYALGIA [None]
  - NIKOLSKY'S SIGN [None]
